FAERS Safety Report 9698781 (Version 2)
Quarter: 2013Q4

REPORT INFORMATION
  Report Type: Spontaneous
  Country: US (occurrence: US)
  Receive Date: 20131120
  Receipt Date: 20131129
  Transmission Date: 20140711
  Serious: Yes (Other)
  Sender: FDA-Public Use
  Company Number: ALCN2013US005762

PATIENT
  Age: 79 Year
  Sex: Male

DRUGS (1)
  1. MIOSTAT [Suspect]
     Dosage: 1 DF, UNK
     Dates: start: 20131024, end: 20131024

REACTIONS (3)
  - Anterior chamber cell [Recovering/Resolving]
  - Anterior chamber fibrin [Recovering/Resolving]
  - Corneal opacity [Recovering/Resolving]
